FAERS Safety Report 11890424 (Version 1)
Quarter: 2016Q1

REPORT INFORMATION
  Report Type: Spontaneous
  Country: FR (occurrence: FR)
  Receive Date: 20160105
  Receipt Date: 20160105
  Transmission Date: 20160526
  Serious: Yes (Disabling, Congenital Anomaly, Other)
  Sender: FDA-Public Use
  Company Number: FR-ABBVIE-16P-056-1530631-00

PATIENT
  Age: 20 Month
  Sex: Female

DRUGS (5)
  1. RETROVIR [Suspect]
     Active Substance: ZIDOVUDINE
     Indication: MATERNAL EXPOSURE TIMING UNSPECIFIED
     Route: 064
  2. VIREAD [Suspect]
     Active Substance: TENOFOVIR DISOPROXIL FUMARATE
     Indication: MATERNAL EXPOSURE TIMING UNSPECIFIED
     Route: 064
  3. NORVIR [Suspect]
     Active Substance: RITONAVIR
     Indication: MATERNAL EXPOSURE TIMING UNSPECIFIED
     Route: 064
  4. AMPRENAVIR [Suspect]
     Active Substance: AMPRENAVIR
     Indication: MATERNAL EXPOSURE TIMING UNSPECIFIED
     Route: 064
  5. RETROVIR [Suspect]
     Active Substance: ZIDOVUDINE
     Indication: PRODUCT USED FOR UNKNOWN INDICATION
     Route: 065
     Dates: start: 20041031, end: 20041231

REACTIONS (10)
  - Foot deformity [Not Recovered/Not Resolved]
  - Muscle spasms [Not Recovered/Not Resolved]
  - Nystagmus [Not Recovered/Not Resolved]
  - Hypotonia [Recovering/Resolving]
  - Normal newborn [Unknown]
  - Tremor [Not Recovered/Not Resolved]
  - Foetal exposure during pregnancy [Unknown]
  - Prognathism [Recovering/Resolving]
  - Drug intolerance [Unknown]
  - Areflexia [Not Recovered/Not Resolved]

NARRATIVE: CASE EVENT DATE: 20041231
